FAERS Safety Report 5505573-3 (Version None)
Quarter: 2007Q4

REPORT INFORMATION
  Report Type: 
  Country: None (occurrence: None)
  Receive Date: 20071102
  Receipt Date: 20071023
  Transmission Date: 20080405
  Serious: Yes (Hospitalization)
  Sender: FDA-Public Use
  Company Number: FR-PFIZER INC-2006138906

PATIENT
  Sex: Female
  Weight: 51 kg

DRUGS (4)
  1. MEDROL [Interacting]
     Indication: RENAL PAIN
     Route: 048
     Dates: start: 20060607, end: 20060611
  2. CIPROFLOXACIN [Interacting]
     Indication: PYELONEPHRITIS
     Route: 048
     Dates: start: 20060601, end: 20060621
  3. DIPROSONE [Suspect]
  4. AMOXICILLIN [Concomitant]
     Route: 048
     Dates: start: 20060621, end: 20060627

REACTIONS (5)
  - DRUG INTERACTION [None]
  - DRUG TOXICITY [None]
  - ERECTILE DYSFUNCTION [None]
  - GAIT DISTURBANCE [None]
  - MYALGIA [None]
